FAERS Safety Report 7878538-4 (Version None)
Quarter: 2011Q4

REPORT INFORMATION
  Report Type: 
  Country: None (occurrence: None)
  Receive Date: 20111101
  Receipt Date: 20100716
  Transmission Date: 20120403
  Serious: Yes (Death, Other)
  Sender: FDA-Public Use
  Company Number: ID-ASTELLAS-2011US007113

PATIENT
  Sex: Male
  Weight: 49 kg

DRUGS (6)
  1. GEMCITABINE [Suspect]
     Indication: NON-SMALL CELL LUNG CANCER
     Dosage: 1800 MG, 2X MONTH
     Route: 042
     Dates: start: 20100609
  2. CODEINE SULFATE [Concomitant]
     Indication: PRODUCT USED FOR UNKNOWN INDICATION
     Dosage: 10 MG, 6 DOSES IN A DAY
     Route: 065
     Dates: start: 20100603
  3. ACETAMINOPHEN [Concomitant]
     Indication: PRODUCT USED FOR UNKNOWN INDICATION
     Dosage: 500 MG, 6 DOSES IN A DAY
     Route: 065
     Dates: start: 20100603
  4. NEURODEX [Concomitant]
     Indication: PRODUCT USED FOR UNKNOWN INDICATION
     Dosage: 1 DF, UID/QD
     Route: 065
     Dates: start: 20100604
  5. ERLOTINIB HYDROCHLORIDE [Suspect]
     Indication: NON-SMALL CELL LUNG CANCER
     Dosage: 1 DF, UID/QD
     Route: 048
     Dates: start: 20100623
  6. CARBOPLATIN [Suspect]
     Dosage: 432 MG, MONTHLY
     Route: 042
     Dates: start: 20100609

REACTIONS (7)
  - GASTROINTESTINAL TUBE INSERTION [None]
  - SEPSIS [None]
  - GASTROINTESTINAL MUCOSAL DISORDER [None]
  - DIARRHOEA [None]
  - VOMITING [None]
  - RASH [None]
  - NAUSEA [None]
